FAERS Safety Report 8299754-6 (Version None)
Quarter: 2012Q2

REPORT INFORMATION
  Report Type: 
  Country: None (occurrence: None)
  Receive Date: 20120419
  Receipt Date: 20120416
  Transmission Date: 20120825
  Serious: Yes (Hospitalization)
  Sender: FDA-Public Use
  Company Number: DK-MERCK-1107DNK00016

PATIENT
  Age: 68 Year
  Sex: Male
  Weight: 78 kg

DRUGS (4)
  1. COZAAR [Suspect]
     Indication: HYPERTENSION
     Route: 048
     Dates: start: 20110309, end: 20110319
  2. ASPIRIN AND DIPYRIDAMOLE [Concomitant]
     Indication: ANTICOAGULANT THERAPY
     Route: 048
     Dates: start: 20100305
  3. SIMVASTATIN [Concomitant]
     Indication: BLOOD CHOLESTEROL INCREASED
     Route: 048
     Dates: start: 20100305
  4. CITALOPRAM HYDROBROMIDE [Concomitant]
     Indication: MOOD ALTERED
     Route: 048
     Dates: start: 20100310

REACTIONS (8)
  - SOMNOLENCE [None]
  - ASTHENIA [None]
  - RASH [None]
  - ECCHYMOSIS [None]
  - DIZZINESS [None]
  - CONFUSIONAL STATE [None]
  - TRANSIENT ISCHAEMIC ATTACK [None]
  - BALANCE DISORDER [None]
